FAERS Safety Report 9646073 (Version 2)
Quarter: 2013Q4

REPORT INFORMATION
  Report Type: Report from Study
  Country: CN (occurrence: CN)
  Receive Date: 20131025
  Receipt Date: 20131031
  Transmission Date: 20140711
  Serious: Yes (Death)
  Sender: FDA-Public Use
  Company Number: CN-ROCHE-1294628

PATIENT
  Sex: Female

DRUGS (2)
  1. HERCEPTIN [Suspect]
     Indication: HER-2 POSITIVE BREAST CANCER
     Route: 041
     Dates: start: 20121124
  2. XELODA [Suspect]
     Indication: HER-2 POSITIVE BREAST CANCER
     Dosage: 1.0
     Route: 065

REACTIONS (1)
  - Death [Fatal]
